FAERS Safety Report 8902562 (Version 1)
Quarter: 2012Q4

REPORT INFORMATION
  Report Type: 
  Country: SE (occurrence: SE)
  Receive Date: 20121112
  Receipt Date: 20121112
  Transmission Date: 20130627
  Serious: Yes (Hospitalization)
  Sender: FDA-Public Use
  Company Number: SE-PFIZER INC-2012277386

PATIENT
  Age: 76 Year
  Sex: Male
  Weight: 87 kg

DRUGS (9)
  1. GENOTROPIN [Suspect]
     Dosage: 0.2 mg, 1x/day, 7 injections/week
     Route: 058
     Dates: start: 20010321
  2. HYDROCORTISONE [Concomitant]
     Indication: BLOOD CORTICOTROPHIN DECREASED
     Dosage: UNK
     Dates: start: 19980601
  3. NEBIDO INJ [Concomitant]
     Indication: LUTEINISING HORMONE DEFICIENCY
     Dosage: UNK
     Dates: start: 20060418
  4. NEBIDO INJ [Concomitant]
     Indication: FOLLICLE-STIMULATING HORMONE DEFICIENCY
  5. NEBIDO INJ [Concomitant]
     Indication: TESTICULAR HYPOGONADISM
  6. TENORMIN [Concomitant]
     Indication: HYPERTENSION
     Dosage: UNK
     Dates: start: 20060418
  7. XATRAL [Concomitant]
     Indication: HYPERTENSION
     Dosage: UNK
     Dates: start: 19980703
  8. SIMVASTATIN [Concomitant]
     Indication: HYPERLIPIDEMIA
     Dosage: UNK
     Dates: start: 20070418
  9. ALFUZOSIN [Concomitant]
     Indication: BENIGN PROSTATIC HYPERPLASIA
     Dosage: UNK
     Dates: start: 20100715

REACTIONS (1)
  - Chest pain [Unknown]
